FAERS Safety Report 4431266-X (Version None)
Quarter: 2004Q3

REPORT INFORMATION
  Report Type: 
  Country: None (occurrence: None)
  Receive Date: 20040823
  Receipt Date: 20040823
  Transmission Date: 20050211
  Serious: Yes (Life-Threatening, Hospitalization)
  Sender: FDA-Public Use
  Company Number: None

PATIENT
  Sex: Male
  Weight: 93.441 kg

DRUGS (4)
  1. STRATTERA [Suspect]
     Indication: MAJOR DEPRESSION
     Dosage: 80MG  QAM  ORAL
     Route: 048
     Dates: start: 20040607, end: 20040709
  2. LEXAPRO [Concomitant]
  3. BETHANECHOL [Concomitant]
  4. THYROID TAB [Concomitant]

REACTIONS (4)
  - ATRIAL FIBRILLATION [None]
  - ATRIAL FLUTTER [None]
  - DIZZINESS [None]
  - PALPITATIONS [None]
